FAERS Safety Report 8314717-X (Version None)
Quarter: 2012Q2

REPORT INFORMATION
  Report Type: 
  Country: None (occurrence: None)
  Receive Date: 20120426
  Receipt Date: 20120425
  Transmission Date: 20120825
  Serious: Yes (Hospitalization, Other)
  Sender: FDA-Public Use
  Company Number: US-BAYER-2012-040357

PATIENT
  Age: 76 Year
  Sex: Male
  Weight: 70 kg

DRUGS (18)
  1. BETASERON [Suspect]
     Dosage: 0.25 MG, QOD
     Route: 058
  2. NIASPAN [Concomitant]
  3. FINASTERIDE [Concomitant]
  4. COMBIVENT [Concomitant]
  5. VITAMIN D [Concomitant]
  6. AMBIEN [Concomitant]
  7. ADVAIR DISKUS 100/50 [Concomitant]
  8. SIMVASTATIN [Concomitant]
  9. TRAMADOL HCL [Concomitant]
  10. OMEPRAZOLE [Concomitant]
  11. HYDROCHLOROTHIAZIDE [Concomitant]
  12. ACETAMINOPHEN [Concomitant]
  13. MAGNESIUM [Concomitant]
  14. PRIMIDONE [Concomitant]
  15. CLARITIN-D [Concomitant]
  16. PLAVIX [Concomitant]
  17. FLOMAX [Concomitant]
  18. ARICEPT [Concomitant]

REACTIONS (2)
  - PNEUMONIA [None]
  - URINARY TRACT INFECTION [None]
